FAERS Safety Report 5884539-8 (Version None)
Quarter: 2008Q3

REPORT INFORMATION
  Report Type: 
  Country: None (occurrence: None)
  Receive Date: 20080911
  Receipt Date: 20080905
  Transmission Date: 20090109
  Serious: Yes (Other)
  Sender: FDA-Public Use
  Company Number: 2008JP004044

PATIENT
  Age: 28 Year
  Sex: Male

DRUGS (5)
  1. PROGRAF [Suspect]
     Indication: MYASTHENIA GRAVIS
     Dosage: 3 MG, /D,
     Dates: start: 20071120
  2. PREDNISOLONE [Concomitant]
  3. CEFEPIME (CEFEPIME) FORMULATION UNKNOWN [Concomitant]
  4. VACOMYCIN (VANCOMYCIN) FORMULATION UNKNOWN [Concomitant]
  5. CEFMETAZOLE (CEFMETAZOLE) FORMULATION UNKNOWN [Concomitant]

REACTIONS (3)
  - ENDOCARDITIS [None]
  - SEPTIC SHOCK [None]
  - STAPHYLOCOCCAL INFECTION [None]
